FAERS Safety Report 23260847 (Version 1)
Quarter: 2023Q4

REPORT INFORMATION
  Report Type: Spontaneous
  Country: AT (occurrence: AT)
  Receive Date: 20231205
  Receipt Date: 20231205
  Transmission Date: 20240109
  Serious: Yes (Hospitalization, Other)
  Sender: FDA-Public Use
  Company Number: AT-ROCHE-3137316

PATIENT
  Age: 37 Year
  Sex: Female

DRUGS (80)
  1. CAPECITABINE [Suspect]
     Active Substance: CAPECITABINE
     Indication: Breast cancer metastatic
     Dosage: DAILY DOSE: 2000 MILLIGRAM
     Route: 048
     Dates: start: 20210404, end: 20220114
  2. CAPECITABINE [Suspect]
     Active Substance: CAPECITABINE
     Indication: Breast cancer metastatic
     Dosage: DAY 1 - DAY 14, BID?DAILY DOSE: 3000 MILLIGRAM
     Route: 048
     Dates: start: 20210430, end: 20210930
  3. CAPECITABINE [Suspect]
     Active Substance: CAPECITABINE
     Indication: Breast cancer metastatic
     Dosage: FREQUENCY: OTHER
     Route: 048
     Dates: start: 20210430
  4. CAPECITABINE [Suspect]
     Active Substance: CAPECITABINE
     Indication: Breast cancer metastatic
     Dosage: DAY 1 - DAY 14, BID?DAILY DOSE: 2000 MILLIGRAM
     Route: 048
     Dates: start: 20210904, end: 20220114
  5. CAPECITABINE [Suspect]
     Active Substance: CAPECITABINE
     Indication: Breast cancer metastatic
     Dosage: DAY 1 - DAY 14, BID?DAILY DOSE: 2000 MILLIGRAM
     Route: 048
     Dates: start: 20220204
  6. KADCYLA [Suspect]
     Active Substance: ADO-TRASTUZUMAB EMTANSINE
     Indication: Breast cancer metastatic
     Dosage: EVERY 3 WEEKS
     Route: 042
     Dates: start: 20180205, end: 20190816
  7. HERCEPTIN [Suspect]
     Active Substance: TRASTUZUMAB
     Indication: Breast cancer metastatic
     Dosage: IV DRIP, EVERY 3 WEEKS, MOST RECENT DOSE PRIOR TO THE EVENT: 6/SEP/2019
     Route: 042
     Dates: start: 20161020, end: 20161020
  8. HERCEPTIN [Suspect]
     Active Substance: TRASTUZUMAB
     Indication: Breast cancer metastatic
     Dosage: IV DRIP, EVERY 3 WEEKS
     Route: 042
     Dates: start: 20170112, end: 20170112
  9. HERCEPTIN [Suspect]
     Active Substance: TRASTUZUMAB
     Indication: Breast cancer metastatic
     Dosage: IV DRIP, EVERY 3 WEEKS
     Route: 042
     Dates: start: 20170227, end: 20180108
  10. HERCEPTIN [Suspect]
     Active Substance: TRASTUZUMAB
     Indication: Breast cancer metastatic
     Dosage: IV DRIP, EVERY 3 WEEKS
     Route: 042
     Dates: start: 20190906
  11. PERJETA [Suspect]
     Active Substance: PERTUZUMAB
     Indication: Breast cancer metastatic
     Dosage: ONCE IN EVERY 3 WEEKS
     Route: 042
     Dates: start: 20161020, end: 20161020
  12. PERJETA [Suspect]
     Active Substance: PERTUZUMAB
     Indication: Breast cancer metastatic
     Dosage: ONCE IN EVERY 3 WEEKS
     Route: 042
     Dates: start: 20170112, end: 20170112
  13. PERJETA [Suspect]
     Active Substance: PERTUZUMAB
     Indication: Breast cancer metastatic
     Route: 042
     Dates: start: 20170227, end: 20180108
  14. PERJETA [Suspect]
     Active Substance: PERTUZUMAB
     Indication: Breast cancer metastatic
     Dosage: ONCE IN EVERY 3 WEEKS
     Route: 042
     Dates: start: 20190906, end: 20210409
  15. CYTOXAN [Suspect]
     Active Substance: CYCLOPHOSPHAMIDE
     Indication: Breast cancer metastatic
     Dosage: OTHER MOST RECENT DOSE PRIOR TO AE 05/OCT/2016
     Route: 042
     Dates: start: 20161005, end: 20161005
  16. TUCATINIB [Suspect]
     Active Substance: TUCATINIB
     Indication: Breast cancer metastatic
     Dosage: BID?DAILY DOSE: 600 MILLIGRAM
     Route: 048
     Dates: start: 20210430, end: 20221023
  17. TAXOTERE [Suspect]
     Active Substance: DOCETAXEL
     Indication: Breast cancer metastatic
     Dosage: ONCE IN EVERY 3 WEEKS
     Route: 042
     Dates: start: 20161020, end: 20161020
  18. TAXOTERE [Suspect]
     Active Substance: DOCETAXEL
     Indication: Breast cancer metastatic
     Dosage: ONCE IN EVERY 3 WEEKS
     Route: 042
     Dates: start: 20161111, end: 20161111
  19. TAXOTERE [Suspect]
     Active Substance: DOCETAXEL
     Indication: Breast cancer metastatic
     Dosage: ONCE IN EVERY 3 WEEKS
     Route: 042
     Dates: start: 20161201, end: 20161222
  20. TAXOTERE [Suspect]
     Active Substance: DOCETAXEL
     Indication: Breast cancer metastatic
     Dosage: ONCE IN EVERY 3 WEEKS
     Route: 042
     Dates: start: 20170112, end: 20170202
  21. ELLENCE [Suspect]
     Active Substance: EPIRUBICIN HYDROCHLORIDE
     Indication: Breast cancer metastatic
     Dosage: ONE CYCLE PER REGIMEN
     Route: 042
     Dates: start: 20161005, end: 20161005
  22. VITAMINS WITH MINERALS [Concomitant]
     Active Substance: MINERALS\VITAMINS
     Indication: Prophylaxis
     Dosage: 1 DF TWICE DAILY?DAILY DOSE: 2 DOSAGE FORM
     Route: 048
     Dates: start: 20161112
  23. Concor / BISOPROLOL FUMARATE [Concomitant]
     Indication: Prophylaxis
     Dosage: 2.5 MG TWICE DAILY
     Route: 048
     Dates: start: 20170227
  24. Xgeva / DENOSUMAB [Concomitant]
     Indication: Prophylaxis
     Dosage: 120 MILLIGRAM IN 1 MONTH
     Route: 058
     Dates: start: 20161201
  25. Sucralan / SUCRALFATE [Concomitant]
     Indication: Prophylaxis
     Dosage: 5 MILLILITRE IN 1 AS NECESSARY
     Route: 048
     Dates: start: 201612, end: 20161212
  26. Sucralan / SUCRALFATE [Concomitant]
     Indication: Prophylaxis
     Dates: start: 20161215
  27. SERTRALINE [Concomitant]
     Active Substance: SERTRALINE HYDROCHLORIDE
     Indication: Depression
     Route: 048
     Dates: start: 20171016
  28. Enterobene / LOPERAMIDE HYDROCHLORIDE [Concomitant]
     Indication: Diarrhoea
     Dosage: 2 MILLIGRAM AS NECESSARY
     Route: 048
     Dates: start: 20171127
  29. RAMIPRIL [Concomitant]
     Active Substance: RAMIPRIL
     Indication: Cardiovascular event prophylaxis
     Dosage: 2.5 MG TWICE DAILY
     Route: 048
     Dates: start: 20161112, end: 20161221
  30. RAMIPRIL [Concomitant]
     Active Substance: RAMIPRIL
     Indication: Cardiovascular event prophylaxis
     Route: 048
     Dates: start: 20161222, end: 20170226
  31. RAMIPRIL [Concomitant]
     Active Substance: RAMIPRIL
     Indication: Cardiovascular event prophylaxis
     Route: 048
     Dates: start: 20170227
  32. RAMIPRIL [Concomitant]
     Active Substance: RAMIPRIL
     Indication: Cardiovascular event prophylaxis
     Route: 048
     Dates: start: 20170227
  33. Ondansan / ONDANSETRON HYDROCHLORIDE [Concomitant]
     Indication: Nausea
     Route: 048
     Dates: start: 20181105
  34. Hydal / HYDROMORPHONE HYDROCHLORIDE [Concomitant]
     Indication: Pain prophylaxis
     Route: 048
     Dates: start: 201706
  35. Hydal / HYDROMORPHONE HYDROCHLORIDE [Concomitant]
     Indication: Pain prophylaxis
     Route: 048
     Dates: start: 20190816, end: 20210326
  36. Hydal / HYDROMORPHONE HYDROCHLORIDE [Concomitant]
     Indication: Pain prophylaxis
     Dates: start: 20210309
  37. Hydal / HYDROMORPHONE HYDROCHLORIDE [Concomitant]
     Indication: Pain prophylaxis
     Route: 048
     Dates: start: 20210326, end: 20210409
  38. Hydal / HYDROMORPHONE HYDROCHLORIDE [Concomitant]
     Indication: Pain prophylaxis
     Dosage: 4 MG TWICE DAILY?DAILY DOSE: 8 MILLIGRAM
     Route: 048
     Dates: start: 20210410
  39. Seractil / DEXIBUPROFEN [Concomitant]
     Indication: Pain prophylaxis
     Dosage: 400 MG TRICE DAILY?DAILY DOSE: 1200 MILLIGRAM
     Route: 048
     Dates: start: 20210312
  40. Levertiracetam [Concomitant]
     Indication: Epilepsy
     Dosage: 750 MG TWICE DAILY?DAILY DOSE: 1500 MILLIGRAM
     Route: 048
     Dates: start: 20220201
  41. Frisium / CLOBAZAM [Concomitant]
     Indication: Epilepsy
     Dosage: 5 TABLET
     Route: 048
     Dates: start: 20220201
  42. Tazonam / PIPERACILLIN SODIUM [Concomitant]
     Route: 042
     Dates: start: 20161208, end: 20161212
  43. Clavamox / Amoxicillin;Clavulanate potassium [Concomitant]
     Route: 048
     Dates: start: 20161212, end: 20161216
  44. Glandomed / CHLORHEXIDINE GLUCONATE [Concomitant]
     Dosage: AS NECESSARY
     Route: 061
     Dates: start: 20161208, end: 20161222
  45. Perfalgan / PARACETAMOL [Concomitant]
     Route: 042
     Dates: start: 20161208, end: 20161212
  46. ZarZio / FILGRASTIM [Concomitant]
     Route: 058
     Dates: start: 20161208, end: 20161211
  47. XARELTO [Concomitant]
     Active Substance: RIVAROXABAN
     Route: 048
     Dates: start: 20161026, end: 201612
  48. Pantoloc / PANTOPRAZOLE SODIUM SESQUIHYDRATE [Concomitant]
     Route: 042
     Dates: start: 20161010, end: 20161018
  49. Pantoloc / PANTOPRAZOLE SODIUM SESQUIHYDRATE [Concomitant]
     Route: 048
     Dates: start: 20161018, end: 20161030
  50. Pantoloc / PANTOPRAZOLE SODIUM SESQUIHYDRATE [Concomitant]
     Route: 048
     Dates: start: 20161031, end: 20161123
  51. Gladem / SERTRALINE HYDROCHLORIDE [Concomitant]
     Route: 048
     Dates: end: 201710
  52. Halcion / TRIAZOLAM [Concomitant]
     Indication: Sleep disorder
     Dosage: DAILY DOSE: 0.25 MILLIGRAM
     Route: 048
     Dates: start: 2016, end: 201610
  53. Haldol / HALOPERIDOL [Concomitant]
     Indication: Prophylaxis of nausea and vomiting
     Route: 048
     Dates: start: 201702
  54. Durogesic / FENTANYL [Concomitant]
     Indication: Pain prophylaxis
     Route: 062
     Dates: start: 201706
  55. Paspertin / METOCLOPRAMIDE HYDROCHLORIDE [Concomitant]
     Indication: Nausea
     Dosage: 3 AMPULE
     Route: 042
     Dates: start: 20161113
  56. Xanor / ALPRAZOLAM [Concomitant]
     Dosage: AS NECESSARY
     Route: 048
     Dates: start: 20161117
  57. Lasix / FUROSEMIDE [Concomitant]
     Indication: Prophylaxis
     Route: 042
     Dates: start: 20161112, end: 20161114
  58. Lasix / FUROSEMIDE [Concomitant]
     Indication: Prophylaxis
     Route: 048
     Dates: start: 20161114, end: 201611
  59. Ceolat / DIMETICONE [Concomitant]
     Indication: Prophylaxis of nausea and vomiting
     Route: 048
     Dates: start: 20161112, end: 201702
  60. KCL [Concomitant]
     Active Substance: POTASSIUM CHLORIDE
     Indication: Prophylaxis
     Route: 048
     Dates: start: 20161117, end: 201702
  61. MOVICOL [Concomitant]
     Active Substance: POLYETHYLENE GLYCOL 3350\POTASSIUM CHLORIDE\SODIUM BICARBONATE\SODIUM CHLORIDE
     Indication: Constipation prophylaxis
     Route: 048
     Dates: end: 201706
  62. Optifibre / CYAMOPSIS TETRAGONOLOBA GUM [Concomitant]
     Indication: Prophylaxis
     Route: 048
     Dates: start: 20161102, end: 2016
  63. Zofran / ONDANSETRON [Concomitant]
     Indication: Prophylaxis of nausea and vomiting
     Route: 048
     Dates: start: 20161123, end: 20170204
  64. Aranesp / DARBEPOETIN ALFA [Concomitant]
     Indication: Anaemia prophylaxis
     Route: 058
     Dates: start: 20161201, end: 201701
  65. Aranesp / DARBEPOETIN ALFA [Concomitant]
     Indication: Anaemia prophylaxis
     Route: 058
     Dates: start: 20161201, end: 201701
  66. Fortecortin / Dexamethasone [Concomitant]
     Indication: Prophylaxis
     Route: 048
     Dates: start: 20161202, end: 20161203
  67. Fortecortin / Dexamethasone [Concomitant]
     Indication: Prophylaxis
     Route: 048
     Dates: start: 20180117, end: 20180122
  68. Lonquex / LIPEGFILGRASTIM [Concomitant]
     Indication: Prophylaxis
     Route: 058
     Dates: start: 20170113, end: 20170203
  69. Imodium / LOPERAMIDE HYDROCHLORIDE [Concomitant]
     Indication: Diarrhoea
     Route: 048
     Dates: start: 20171106, end: 20171127
  70. METOCLOPRAMIDE [Concomitant]
     Active Substance: METOCLOPRAMIDE
     Indication: Prophylaxis of nausea and vomiting
     Route: 042
     Dates: start: 20180205, end: 20190816
  71. METOCLOPRAMIDE [Concomitant]
     Active Substance: METOCLOPRAMIDE
     Indication: Prophylaxis of nausea and vomiting
  72. DEXAMETHASONE [Concomitant]
     Active Substance: DEXAMETHASONE
     Indication: Headache
     Route: 048
     Dates: start: 20180817, end: 20180831
  73. DEXAMETHASONE [Concomitant]
     Active Substance: DEXAMETHASONE
     Indication: Headache
     Dates: start: 20221123, end: 20221215
  74. LAXAGOL [Concomitant]
     Dates: start: 20201120
  75. CONCOR COR / BISOPROLOL FUMARATE [Concomitant]
     Route: 048
     Dates: start: 20161117, end: 20170226
  76. APREPITANT [Concomitant]
     Active Substance: APREPITANT
     Dates: start: 20221123
  77. ESOMEPRAZOLE [Concomitant]
     Active Substance: ESOMEPRAZOLE
     Dates: start: 20221123
  78. MILNACIPRAN [Concomitant]
     Active Substance: MILNACIPRAN
     Dates: start: 20221123
  79. TRITTICO / TRAZODONE HYDROCHLORIDE [Concomitant]
     Dates: start: 20221129
  80. LEVOCETIRIZIN / LEVOCETIRIZINE DIHYDROCHLORIDE [Concomitant]
     Dates: start: 20220801

REACTIONS (5)
  - Thrombocytopenia [Recovering/Resolving]
  - Nausea [Recovered/Resolved]
  - White blood cell count decreased [Recovered/Resolved]
  - Hemianopia [Recovered/Resolved]
  - Skin fissures [Recovered/Resolved]

NARRATIVE: CASE EVENT DATE: 20180522
